FAERS Safety Report 11487698 (Version 1)
Quarter: 2015Q3

REPORT INFORMATION
  Report Type: Spontaneous
  Country: US (occurrence: US)
  Receive Date: 20150910
  Receipt Date: 20150910
  Transmission Date: 20151125
  Serious: No
  Sender: FDA-Public Use
  Company Number: US-PFIZER INC-2015297256

PATIENT
  Age: 45 Year
  Sex: Female
  Weight: 72 kg

DRUGS (2)
  1. PREMARIN [Suspect]
     Active Substance: ESTROGENS, CONJUGATED
     Indication: VULVOVAGINAL DRYNESS
     Dosage: 1 G, UNK
     Route: 067
     Dates: start: 20150806, end: 20150806
  2. GLYCERIN. [Suspect]
     Active Substance: GLYCERIN
     Dosage: UNK
     Dates: start: 20150806, end: 20150806

REACTIONS (5)
  - Reaction to drug excipients [Recovered/Resolved]
  - Vulvovaginal discomfort [Recovering/Resolving]
  - Vulvovaginal pain [Recovered/Resolved]
  - Intentional product misuse [Unknown]
  - Vulvovaginal burning sensation [Recovered/Resolved]

NARRATIVE: CASE EVENT DATE: 20150806
